FAERS Safety Report 21635727 (Version 1)
Quarter: 2022Q4

REPORT INFORMATION
  Report Type: Report from Study
  Country: US (occurrence: US)
  Receive Date: 20221123
  Receipt Date: 20221123
  Transmission Date: 20230113
  Serious: No
  Sender: FDA-Public Use
  Company Number: US-ABBVIE-22K-163-4513332-00

PATIENT
  Sex: Female

DRUGS (1)
  1. CREON [Suspect]
     Active Substance: PANCRELIPASE AMYLASE\PANCRELIPASE LIPASE\PANCRELIPASE PROTEASE
     Indication: Pancreatic disorder
     Dosage: TWO CAPSULES WITH MEALS AND ONE CAPSULE WITH SNACK
     Route: 048

REACTIONS (4)
  - Swelling [Unknown]
  - Swelling [Unknown]
  - Dyspepsia [Unknown]
  - Anxiety [Not Recovered/Not Resolved]
